FAERS Safety Report 16988676 (Version 1)
Quarter: 2019Q4

REPORT INFORMATION
  Report Type: Spontaneous
  Country: DE (occurrence: DE)
  Receive Date: 20191104
  Receipt Date: 20191104
  Transmission Date: 20200122
  Serious: Yes (Other)
  Sender: FDA-Public Use
  Company Number: DE-ROCHE-2451628

PATIENT
  Sex: Male
  Weight: 82 kg

DRUGS (1)
  1. OCREVUS [Suspect]
     Active Substance: OCRELIZUMAB
     Indication: MULTIPLE SCLEROSIS
     Route: 042
     Dates: start: 20190711

REACTIONS (7)
  - Fatigue [Unknown]
  - Depression [Unknown]
  - Multiple sclerosis relapse [Unknown]
  - Blood pressure decreased [Unknown]
  - Tinnitus [Unknown]
  - Gait disturbance [Unknown]
  - Headache [Unknown]
